FAERS Safety Report 21854399 (Version 1)
Quarter: 2023Q1

REPORT INFORMATION
  Report Type: Spontaneous
  Country: JP (occurrence: JP)
  Receive Date: 20230112
  Receipt Date: 20230112
  Transmission Date: 20230418
  Serious: Yes (Other)
  Sender: FDA-Public Use
  Company Number: JP-ELI_LILLY_AND_COMPANY-JP202301003159

PATIENT
  Age: 79 Year
  Sex: Female

DRUGS (1)
  1. VERZENIO [Suspect]
     Active Substance: ABEMACICLIB
     Indication: Breast cancer recurrent
     Route: 048

REACTIONS (5)
  - Renal impairment [Unknown]
  - Cough [Unknown]
  - Pyrexia [Unknown]
  - Fibrin D dimer increased [Unknown]
  - Vomiting [Unknown]
